FAERS Safety Report 25309419 (Version 1)
Quarter: 2025Q2

REPORT INFORMATION
  Report Type: Report from Study
  Country: US (occurrence: US)
  Receive Date: 20250513
  Receipt Date: 20250513
  Transmission Date: 20250716
  Serious: Yes (Hospitalization, Other)
  Sender: ABBVIE
  Company Number: US-ABBVIE-6244586

PATIENT
  Age: 56 Year
  Sex: Female
  Weight: 58.5 kg

DRUGS (4)
  1. VYALEV [Suspect]
     Active Substance: FOSCARBIDOPA\FOSLEVODOPA
     Indication: Parkinson^s disease
     Route: 058
     Dates: start: 20250205, end: 20250421
  2. TEMAZEPAM [Concomitant]
     Active Substance: TEMAZEPAM
     Indication: Sleep disorder
  3. LEXAPRO [Concomitant]
     Active Substance: ESCITALOPRAM OXALATE
     Indication: Depression
  4. CYCLOBENZAPRINE [Concomitant]
     Active Substance: CYCLOBENZAPRINE
     Indication: Muscle relaxant therapy

REACTIONS (7)
  - Pseudomonas infection [Recovering/Resolving]
  - Infusion site abscess [Recovering/Resolving]
  - White blood cell count decreased [Unknown]
  - Red blood cell count decreased [Unknown]
  - Infusion site pain [Unknown]
  - Infusion site swelling [Unknown]
  - Infusion site erythema [Unknown]

NARRATIVE: CASE EVENT DATE: 20250101
